FAERS Safety Report 8381844 (Version 2)
Quarter: 2015Q1

REPORT INFORMATION
  Report Type: Report from Study
  Country: US (occurrence: US)
  Receive Date: 20120201
  Receipt Date: 20150319
  Transmission Date: 20150721
  Serious: Yes (Death)
  Sender: FDA-Public Use
  Company Number: US-ROCHE-1035109

PATIENT
  Sex: Male

DRUGS (13)
  1. OXALIPLATIN. [Concomitant]
     Active Substance: OXALIPLATIN
     Route: 065
  2. CALCIUM GLUCONATE. [Concomitant]
     Active Substance: CALCIUM GLUCONATE
     Route: 065
  3. LEUCOVORIN [Concomitant]
     Active Substance: LEUCOVORIN
     Route: 065
  4. ARANESP [Concomitant]
     Active Substance: DARBEPOETIN ALFA
     Route: 065
  5. MAGNESIUM SULFATE. [Concomitant]
     Active Substance: MAGNESIUM SULFATE
     Route: 065
  6. ALOXI [Concomitant]
     Active Substance: PALONOSETRON HYDROCHLORIDE
     Route: 065
  7. ZOFRAN [Concomitant]
     Active Substance: ONDANSETRON HYDROCHLORIDE
     Route: 065
  8. LEUCOVORIN [Concomitant]
     Active Substance: LEUCOVORIN
     Route: 065
  9. 5-FLUOROURACIL [Concomitant]
     Active Substance: FLUOROURACIL
     Route: 065
  10. DECADRON [Concomitant]
     Active Substance: DEXAMETHASONE
     Route: 065
  11. AVASTIN [Suspect]
     Active Substance: BEVACIZUMAB
     Route: 042
  12. AVASTIN [Suspect]
     Active Substance: BEVACIZUMAB
     Indication: METASTASES TO LIVER
     Route: 042
     Dates: start: 20080129
  13. 5-FLUOROURACIL [Concomitant]
     Active Substance: FLUOROURACIL
     Route: 065

REACTIONS (2)
  - Death [Fatal]
  - Off label use [Unknown]
